FAERS Safety Report 10493905 (Version 1)
Quarter: 2014Q4

REPORT INFORMATION
  Report Type: Spontaneous
  Country: US (occurrence: US)
  Receive Date: 20141003
  Receipt Date: 20141003
  Transmission Date: 20150528
  Serious: Yes (Other)
  Sender: FDA-Public Use
  Company Number: US-ROCHE-1468874

PATIENT
  Sex: Female

DRUGS (6)
  1. RADIATION [Concomitant]
     Active Substance: RADIATION THERAPY
     Indication: BREAST CANCER METASTATIC
  2. LISINOPRIL. [Concomitant]
     Active Substance: LISINOPRIL
     Indication: HYPERTENSION
  3. NAVELBINE [Concomitant]
     Active Substance: VINORELBINE TARTRATE
     Indication: BREAST CANCER METASTATIC
     Route: 042
     Dates: start: 201407
  4. FUROSEMIDE. [Concomitant]
     Active Substance: FUROSEMIDE
  5. HERCEPTIN [Suspect]
     Active Substance: TRASTUZUMAB
     Indication: BREAST CANCER METASTATIC
     Route: 042
     Dates: start: 201407
  6. ERIBULIN [Concomitant]
     Active Substance: ERIBULIN
     Indication: BREAST CANCER METASTATIC
     Route: 065
     Dates: start: 201409

REACTIONS (4)
  - Brain oedema [Recovering/Resolving]
  - Metastases to central nervous system [Not Recovered/Not Resolved]
  - Carcinoembryonic antigen increased [Unknown]
  - Amnesia [Recovering/Resolving]
